FAERS Safety Report 4960139-9 (Version None)
Quarter: 2006Q1

REPORT INFORMATION
  Report Type: 
  Country: None (occurrence: None)
  Receive Date: 20060328
  Receipt Date: 20060318
  Transmission Date: 20060701
  Serious: Yes (Other)
  Sender: FDA-Public Use
  Company Number: 2006012678

PATIENT
  Age: 52 Year
  Sex: Male

DRUGS (3)
  1. LYRICA [Suspect]
     Indication: NEUROPATHY
     Dosage: 225 MG (75 MG, 3 IN 1 D), ORAL
     Route: 048
     Dates: start: 20051003, end: 20060101
  2. DURAGESIC-100 [Concomitant]
  3. NEURONTIN [Concomitant]

REACTIONS (6)
  - ABDOMINAL DISTENSION [None]
  - ANOSMIA [None]
  - CONFUSIONAL STATE [None]
  - DECREASED APPETITE [None]
  - DYSGEUSIA [None]
  - PAROSMIA [None]
